FAERS Safety Report 10166434 (Version 1)
Quarter: 2014Q2

REPORT INFORMATION
  Report Type: Spontaneous
  Country: US (occurrence: None)
  Receive Date: 20140509
  Receipt Date: 20140509
  Transmission Date: 20141212
  Serious: Yes (Other)
  Sender: FDA-Public Use
  Company Number: None

PATIENT
  Age: 35 Year
  Sex: Female
  Weight: 91.7 kg

DRUGS (7)
  1. DOPAMINE [Suspect]
     Indication: HYPOTENSION
     Route: 042
     Dates: start: 20140311, end: 20140312
  2. D5/LR WITH 20MEQ KCL [Concomitant]
  3. ONDANSETRON [Concomitant]
  4. ENOXAPARIN [Concomitant]
  5. PANTOPRAZOLE [Concomitant]
  6. NALOXONE [Concomitant]
  7. SODIUM CHLORIDE 0.9% [Concomitant]

REACTIONS (3)
  - Injection site pain [None]
  - Injection site swelling [None]
  - Injection site extravasation [None]
